FAERS Safety Report 8994614 (Version 1)
Quarter: 2012Q4

REPORT INFORMATION
  Report Type: Spontaneous
  Country: US (occurrence: None)
  Receive Date: 20121228
  Receipt Date: 20121228
  Transmission Date: 20130627
  Serious: No
  Sender: FDA-Public Use
  Company Number: None

PATIENT
  Age: 30 Year
  Sex: Male
  Weight: 80.06 kg

DRUGS (1)
  1. MEDROXYPROGESTERONE ACETATE 150MG IN 1ML GREENSTONE LLC [Suspect]
     Indication: CONTRACEPTION
     Dosage: 150mg every 13 weeks IM
     Dates: start: 20120807, end: 20121227

REACTIONS (1)
  - Metrorrhagia [None]
